FAERS Safety Report 8817155 (Version 1)
Quarter: 2012Q4

REPORT INFORMATION
  Report Type: Spontaneous
  Country: None (occurrence: None)
  Receive Date: 20121002
  Receipt Date: 20121002
  Transmission Date: 20130627
  Serious: Yes (Hospitalization)
  Sender: FDA-Public Use
  Company Number: AUR-APL-2012-04224

PATIENT
  Age: 89 Year
  Sex: Female

DRUGS (6)
  1. RAMIPRIL [Suspect]
     Route: 048
  2. ALDACTAZINE [Suspect]
     Route: 048
  3. PANTOPRAZOLE (PANTOPRAZOLE) [Suspect]
     Route: 048
  4. ALLOPURINOL [Suspect]
     Route: 048
     Dates: start: 201205, end: 201206
  5. MIANSERIN HYDROCHLORIDE [Suspect]
     Route: 048
  6. FUROSEMIDE [Suspect]
     Route: 048

REACTIONS (10)
  - Drug reaction with eosinophilia and systemic symptoms [None]
  - Renal failure chronic [None]
  - Renal disorder [None]
  - Skin disorder [None]
  - Hepatocellular injury [None]
  - Cholestasis [None]
  - Renal failure acute [None]
  - Hypotension [None]
  - Confusional state [None]
  - Dermatitis exfoliative [None]
